FAERS Safety Report 20798651 (Version 9)
Quarter: 2025Q4

REPORT INFORMATION
  Report Type: Report from Study
  Country: US (occurrence: US)
  Receive Date: 20220507
  Receipt Date: 20251209
  Transmission Date: 20260118
  Serious: Yes (Hospitalization, Other)
  Sender: TAKEDA
  Company Number: US-TAKEDA-2021TUS035125

PATIENT
  Age: 70 Year
  Sex: Female

DRUGS (5)
  1. TEDUGLUTIDE [Suspect]
     Active Substance: TEDUGLUTIDE
     Indication: Short-bowel syndrome
     Dosage: UNK UNK, QD
     Dates: start: 20150824
  2. TEDUGLUTIDE [Suspect]
     Active Substance: TEDUGLUTIDE
     Dosage: UNK UNK, QD
     Dates: start: 20160824
  3. TEDUGLUTIDE [Suspect]
     Active Substance: TEDUGLUTIDE
     Dosage: UNK UNK, QD
  4. TEDUGLUTIDE [Suspect]
     Active Substance: TEDUGLUTIDE
     Dosage: UNK UNK, QD
  5. TEDUGLUTIDE [Suspect]
     Active Substance: TEDUGLUTIDE
     Dosage: UNK UNK, QD

REACTIONS (15)
  - Staphylococcal infection [Unknown]
  - Pneumonia [Unknown]
  - Vascular device infection [Not Recovered/Not Resolved]
  - Haematological infection [Not Recovered/Not Resolved]
  - Blood magnesium decreased [Unknown]
  - Weight decreased [Unknown]
  - Hallucination [Unknown]
  - Concussion [Unknown]
  - Amnesia [Unknown]
  - Tremor [Unknown]
  - Somnambulism [Unknown]
  - Malaise [Unknown]
  - Flatulence [Unknown]
  - Gastrointestinal stoma complication [Unknown]
  - Fall [Unknown]

NARRATIVE: CASE EVENT DATE: 20250320
